FAERS Safety Report 5119349-2 (Version None)
Quarter: 2006Q4

REPORT INFORMATION
  Report Type: 
  Country: None (occurrence: None)
  Receive Date: 20061003
  Receipt Date: 20060830
  Transmission Date: 20070319
  Serious: Yes (Death, Other)
  Sender: FDA-Public Use
  Company Number: US-JNJFOC-20060906515

PATIENT
  Age: 83 Year
  Sex: Female
  Weight: 75 kg

DRUGS (6)
  1. REOPRO [Suspect]
     Indication: PERCUTANEOUS CORONARY INTERVENTION
     Route: 042
  2. ASPIRIN [Concomitant]
     Indication: MYOCARDIAL INFARCTION
  3. HEPARIN [Concomitant]
     Indication: PERCUTANEOUS CORONARY INTERVENTION
  4. MIDAZOLAM HCL [Concomitant]
     Indication: SEDATIVE THERAPY
  5. TARCEFOKSYM [Concomitant]
     Indication: PROPHYLAXIS
  6. ALBUMIN (HUMAN) [Concomitant]
     Indication: PROPHYLAXIS

REACTIONS (2)
  - CARDIOGENIC SHOCK [None]
  - GASTROINTESTINAL HAEMORRHAGE [None]
